FAERS Safety Report 15074546 (Version 1)
Quarter: 2018Q2

REPORT INFORMATION
  Report Type: Spontaneous
  Country: US (occurrence: US)
  Receive Date: 20180627
  Receipt Date: 20180627
  Transmission Date: 20180711
  Serious: Yes (Other)
  Sender: FDA-Public Use
  Company Number: US-SAOL THERAPEUTICS-2018SAO00638

PATIENT
  Age: 29 Year
  Sex: Male
  Weight: 84.81 kg

DRUGS (1)
  1. BACLOFEN. [Suspect]
     Active Substance: BACLOFEN
     Route: 037

REACTIONS (5)
  - Drug withdrawal syndrome [Unknown]
  - Complication associated with device [Recovered/Resolved]
  - Fall [Unknown]
  - Muscle spasticity [Unknown]
  - Device occlusion [Recovered/Resolved]

NARRATIVE: CASE EVENT DATE: 20160930
